FAERS Safety Report 7520717-X (Version None)
Quarter: 2011Q2

REPORT INFORMATION
  Report Type: 
  Country: None (occurrence: None)
  Receive Date: 20110603
  Receipt Date: 20101101
  Transmission Date: 20111010
  Serious: Yes (Death, Hospitalization)
  Sender: FDA-Public Use
  Company Number: JP-BAYER-200914192BYL

PATIENT
  Age: 76 Year
  Sex: Male
  Weight: 54 kg

DRUGS (13)
  1. SELBEX [Concomitant]
     Dosage: SINCE BEFORE ADMINISTRATION
     Route: 048
  2. ASPARA K [Concomitant]
     Dosage: SINCE BEFORE ADMINISTRATION
     Route: 048
  3. UREPEARL [Concomitant]
     Indication: PROPHYLAXIS
     Route: 061
     Dates: start: 20090616
  4. LASIX [Concomitant]
     Indication: HEPATIC FUNCTION ABNORMAL
     Dosage: 20 MG, QD
     Route: 048
     Dates: start: 20090730, end: 20090908
  5. ALDACTONE [Concomitant]
     Indication: HEPATIC FUNCTION ABNORMAL
     Dosage: 50 MG, QD
     Route: 048
     Dates: start: 20090630, end: 20090908
  6. FALKAMIN [Concomitant]
     Dosage: SINCE BEFORE ADMINISTRATION
     Route: 048
  7. GLAKAY [Concomitant]
     Dosage: SINCE BEFORE ADMINISTRATION
     Route: 048
  8. NEXAVAR [Suspect]
     Indication: HEPATIC NEOPLASM MALIGNANT
     Route: 048
     Dates: start: 20090616, end: 20090706
  9. LOXONIN [Concomitant]
     Dosage: SINCE BEFORE ADMINISTRATION
     Route: 048
  10. GLYCYRON [Concomitant]
     Dosage: SINCE BEFORE ADMINISTRATION
     Route: 048
  11. LIVACT [Concomitant]
     Dosage: SINCE BEFORE ADMINISTRATION
     Route: 048
  12. URSO 250 [Concomitant]
     Dosage: SINCE BEFORE ADMINISTRATION
     Route: 048
  13. AMLODIPINE [Concomitant]
     Dosage: SINCE BEFORE ADMINISTRATION
     Route: 048

REACTIONS (3)
  - RASH [None]
  - HEPATIC FUNCTION ABNORMAL [None]
  - HEPATORENAL FAILURE [None]
